FAERS Safety Report 8570307-5 (Version None)
Quarter: 2012Q3

REPORT INFORMATION
  Report Type: 
  Country: None (occurrence: None)
  Receive Date: 20120803
  Receipt Date: 20120711
  Transmission Date: 20120928
  Serious: No
  Sender: FDA-Public Use
  Company Number: US-009507513-1207USA002785

PATIENT

DRUGS (3)
  1. PEGASYS [Suspect]
     Dosage: UNK
     Dates: end: 20120704
  2. VICTRELIS [Suspect]
     Dosage: 4 DF, TID
     Route: 048
     Dates: start: 20120606, end: 20120704
  3. REBETOL [Suspect]
     Dosage: UNK
     Route: 048
     Dates: end: 20120704

REACTIONS (4)
  - DYSSTASIA [None]
  - EPISTAXIS [None]
  - ANAEMIA [None]
  - INFLUENZA LIKE ILLNESS [None]
